FAERS Safety Report 10745574 (Version 1)
Quarter: 2015Q1

REPORT INFORMATION
  Report Type: Spontaneous
  Country: US (occurrence: None)
  Receive Date: 20150127
  Receipt Date: 20150127
  Transmission Date: 20150721
  Serious: No
  Sender: FDA-Public Use
  Company Number: None

PATIENT
  Age: 15 Year
  Sex: Female

DRUGS (1)
  1. HUMIRA [Suspect]
     Active Substance: ADALIMUMAB
     Dosage: ONE PEN (40 MG) EVERY 14 DAYS, SUBCUTANEOUS
     Route: 058

REACTIONS (1)
  - Insomnia [None]

NARRATIVE: CASE EVENT DATE: 20140414
